FAERS Safety Report 7467226-4 (Version None)
Quarter: 2011Q2

REPORT INFORMATION
  Report Type: 
  Country: None (occurrence: None)
  Receive Date: 20110509
  Receipt Date: 20101116
  Transmission Date: 20111010
  Serious: Yes (Hospitalization, Other)
  Sender: FDA-Public Use
  Company Number: US-ALEXION-A201001403

PATIENT
  Sex: Male

DRUGS (2)
  1. FOLIC ACID [Concomitant]
     Indication: PAROXYSMAL NOCTURNAL HAEMOGLOBINURIA
     Dosage: UNK
     Route: 048
  2. SOLIRIS [Suspect]
     Indication: PAROXYSMAL NOCTURNAL HAEMOGLOBINURIA
     Dosage: 900 MG, Q2W
     Route: 042
     Dates: start: 20081001

REACTIONS (4)
  - CHOLELITHIASIS [None]
  - ABDOMINAL PAIN UPPER [None]
  - CHROMATURIA [None]
  - JAUNDICE CHOLESTATIC [None]
